FAERS Safety Report 10742585 (Version 3)
Quarter: 2015Q2

REPORT INFORMATION
  Report Type: Spontaneous
  Country: US (occurrence: US)
  Receive Date: 20150127
  Receipt Date: 20150514
  Transmission Date: 20150821
  Serious: Yes (Life-Threatening, Hospitalization, Disabling)
  Sender: FDA-Public Use
  Company Number: US-ENDO PHARMACEUTICALS INC.-FORT20150017

PATIENT
  Age: 51 Year
  Sex: Male
  Weight: 95.34 kg

DRUGS (4)
  1. SIMVASTATIN. [Concomitant]
     Active Substance: SIMVASTATIN
     Indication: DYSLIPIDAEMIA
     Route: 048
  2. ASPIRIN. [Concomitant]
     Active Substance: ASPIRIN
     Indication: PRODUCT USED FOR UNKNOWN INDICATION
     Route: 048
  3. LISINOPRIL TABLETS 10MG [Concomitant]
     Active Substance: LISINOPRIL
     Indication: HYPERTENSION
  4. FORTESTA [Suspect]
     Active Substance: TESTOSTERONE
     Indication: BLOOD TESTOSTERONE DECREASED
     Route: 061
     Dates: start: 20111212, end: 20130124

REACTIONS (6)
  - Pain [Not Recovered/Not Resolved]
  - Cardiac arrest [Unknown]
  - Acute myocardial infarction [Not Recovered/Not Resolved]
  - Chest pain [Unknown]
  - Emotional disorder [Not Recovered/Not Resolved]
  - Anxiety [Not Recovered/Not Resolved]

NARRATIVE: CASE EVENT DATE: 20130124
